FAERS Safety Report 5389603-8 (Version None)
Quarter: 2007Q3

REPORT INFORMATION
  Report Type: 
  Country: None (occurrence: None)
  Receive Date: 20070713
  Receipt Date: 20070703
  Transmission Date: 20080115
  Serious: Yes (Other)
  Sender: FDA-Public Use
  Company Number: B0438115A

PATIENT
  Age: 66 Year
  Sex: Female

DRUGS (8)
  1. PAXIL [Suspect]
     Indication: MAJOR DEPRESSION
     Dosage: UNK / UNK / ORAL
     Route: 048
     Dates: start: 20051107
  2. LIMAPROST TABLET (LIMAPROST) [Suspect]
     Dosage: 10 MCG / PER DAY / ORAL
     Route: 048
  3. MAGNESIUM OXIDE [Concomitant]
  4. MOSAPRIDE CITRATE [Concomitant]
  5. PANTETHINE [Concomitant]
  6. MIANSERIN HYDROCHLORIDE [Concomitant]
  7. FLUNITRAZEPAM [Concomitant]
  8. PURSENNID [Concomitant]

REACTIONS (4)
  - CONJUNCTIVAL HAEMORRHAGE [None]
  - DRUG INTERACTION [None]
  - EPISTAXIS [None]
  - HAEMATOCHEZIA [None]
